FAERS Safety Report 9169831 (Version 4)
Quarter: 2013Q2

REPORT INFORMATION
  Report Type: Spontaneous
  Country: NO (occurrence: NO)
  Receive Date: 20130319
  Receipt Date: 20130617
  Transmission Date: 20140414
  Serious: Yes (Hospitalization)
  Sender: FDA-Public Use
  Company Number: NO-MERCK-1303NOR007833

PATIENT
  Age: 47 Year
  Sex: Male

DRUGS (4)
  1. VICTRELIS [Suspect]
     Dosage: UNK
     Route: 048
     Dates: start: 20130116
  2. PEGINTRON [Suspect]
     Dosage: UNK
     Dates: start: 20121211
  3. REBETOL [Suspect]
     Dosage: UNK
     Route: 048
     Dates: start: 20121211
  4. METHADONE HYDROCHLORIDE [Concomitant]
     Dosage: UNK

REACTIONS (3)
  - White blood cell count decreased [Recovering/Resolving]
  - Neutrophil count decreased [Recovering/Resolving]
  - Haemoglobin decreased [Recovering/Resolving]
